FAERS Safety Report 13337030 (Version 13)
Quarter: 2020Q4

REPORT INFORMATION
  Report Type: Spontaneous
  Country: US (occurrence: US)
  Receive Date: 20170315
  Receipt Date: 20201030
  Transmission Date: 20210113
  Serious: Yes (Death, Hospitalization, Other)
  Sender: FDA-Public Use
  Company Number: US-PFIZER INC-2017113678

PATIENT
  Age: 82 Year
  Sex: Female
  Weight: 62 kg

DRUGS (2)
  1. XELJANZ XR [Suspect]
     Active Substance: TOFACITINIB CITRATE
     Dosage: 11 MG, 1X/DAY
     Route: 048
     Dates: end: 201808
  2. XELJANZ XR [Suspect]
     Active Substance: TOFACITINIB CITRATE
     Indication: RHEUMATOID ARTHRITIS
     Dosage: 11 MG, 1X/DAY
     Route: 048
     Dates: start: 201702

REACTIONS (10)
  - Arthralgia [Unknown]
  - Joint effusion [Unknown]
  - Pharyngeal disorder [Unknown]
  - Malaise [Unknown]
  - Death [Fatal]
  - Laryngeal disorder [Recovered/Resolved]
  - Wrong technique in product usage process [Unknown]
  - Post procedural complication [Recovered/Resolved]
  - Joint swelling [Not Recovered/Not Resolved]
  - Condition aggravated [Not Recovered/Not Resolved]

NARRATIVE: CASE EVENT DATE: 20201021
